FAERS Safety Report 24059491 (Version 1)
Quarter: 2024Q3

REPORT INFORMATION
  Report Type: Spontaneous
  Country: US (occurrence: US)
  Receive Date: 20240708
  Receipt Date: 20240708
  Transmission Date: 20241017
  Serious: No
  Sender: DR REDDYS
  Company Number: US-E2BLSMVVAL-SPO/USA/24/0009477

PATIENT
  Age: 22 Year
  Weight: 85 kg

DRUGS (1)
  1. ZENATANE [Suspect]
     Active Substance: ISOTRETINOIN
     Indication: Acne
     Route: 065
     Dates: start: 20240515, end: 20240620

REACTIONS (2)
  - Oropharyngeal discomfort [Unknown]
  - Urticaria [Unknown]

NARRATIVE: CASE EVENT DATE: 20240620
